FAERS Safety Report 7661776-3 (Version None)
Quarter: 2011Q3

REPORT INFORMATION
  Report Type: 
  Country: None (occurrence: None)
  Receive Date: 20110805
  Receipt Date: 20101025
  Transmission Date: 20111222
  Serious: No
  Sender: FDA-Public Use
  Company Number: US-ABBOTT-10P-163-0681576-00

PATIENT
  Sex: Female
  Weight: 93.524 kg

DRUGS (7)
  1. LIPITOR [Concomitant]
     Indication: BLOOD CHOLESTEROL INCREASED
  2. CITALOPRAM HYDROBROMIDE [Concomitant]
     Indication: ANXIETY
  3. NIASPAN [Suspect]
     Indication: HIGH DENSITY LIPOPROTEIN DECREASED
     Dates: start: 20100926, end: 20101006
  4. LISINOPRIL AND HYDROCHLOROTHIAZIDE [Concomitant]
     Indication: HYPERTENSION
  5. METFORMIN HCL [Concomitant]
     Indication: DIABETES MELLITUS
  6. NEXIUM [Concomitant]
     Indication: BARRETT'S OESOPHAGUS
  7. BYETTE [Concomitant]
     Indication: TYPE 2 DIABETES MELLITUS

REACTIONS (6)
  - INCOHERENT [None]
  - DIZZINESS [None]
  - FATIGUE [None]
  - BLOOD GLUCOSE DECREASED [None]
  - NAUSEA [None]
  - COLD SWEAT [None]
